FAERS Safety Report 13598163 (Version 1)
Quarter: 2017Q2

REPORT INFORMATION
  Report Type: Spontaneous
  Country: BE (occurrence: BE)
  Receive Date: 20170531
  Receipt Date: 20170531
  Transmission Date: 20170830
  Serious: Yes (Other)
  Sender: FDA-Public Use
  Company Number: BE-CONCORDIA PHARMACEUTICALS INC.-GSH201705-002888

PATIENT
  Age: 62 Year
  Sex: Male

DRUGS (10)
  1. PREDNISOLONE. [Suspect]
     Active Substance: PREDNISOLONE
  2. PREDNISOLONE. [Suspect]
     Active Substance: PREDNISOLONE
  3. POTASSIUM PERCHLORATE [Suspect]
     Active Substance: POTASSIUM PERCHLORATE
     Indication: HYPERTHYROIDISM
  4. AMIODARONE [Concomitant]
     Active Substance: AMIODARONE
     Indication: SINUS RHYTHM
     Route: 048
  5. PREDNISOLONE. [Suspect]
     Active Substance: PREDNISOLONE
     Indication: HYPERTHYROIDISM
  6. THIAMAZOLE [Suspect]
     Active Substance: METHIMAZOLE
     Indication: HYPERTHYROIDISM
  7. THIAMAZOLE [Suspect]
     Active Substance: METHIMAZOLE
     Dosage: FIRST WEEK
  8. PREDNISOLONE. [Suspect]
     Active Substance: PREDNISOLONE
  9. THIAMAZOLE [Suspect]
     Active Substance: METHIMAZOLE
     Dosage: FIRST WEEK
  10. POTASSIUM PERCHLORATE [Suspect]
     Active Substance: POTASSIUM PERCHLORATE

REACTIONS (2)
  - Drug ineffective [Unknown]
  - Condition aggravated [Unknown]
